FAERS Safety Report 8912326 (Version 1)
Quarter: 2012Q4

REPORT INFORMATION
  Report Type: 
  Country: US (occurrence: US)
  Receive Date: 20121116
  Receipt Date: 20121116
  Transmission Date: 20130627
  Serious: Yes (Other)
  Sender: FDA-Public Use
  Company Number: US-TEVA-370149USA

PATIENT
  Sex: Female

DRUGS (1)
  1. CLARAVIS [Suspect]
     Dates: start: 20090724, end: 20120317

REACTIONS (39)
  - Hepatic neoplasm [Unknown]
  - Crohn^s disease [Unknown]
  - Hepatic lesion [Unknown]
  - Arthropathy [Unknown]
  - Inflammation [Unknown]
  - Arthritis [Unknown]
  - Movement disorder [Unknown]
  - Rash [Unknown]
  - Back pain [Unknown]
  - Visual impairment [Unknown]
  - Diarrhoea [Unknown]
  - Migraine [Unknown]
  - Nausea [Unknown]
  - Vomiting [Unknown]
  - Myalgia [Unknown]
  - Rectal haemorrhage [Unknown]
  - Bone pain [Unknown]
  - Burning sensation [Unknown]
  - Abdominal pain upper [Unknown]
  - Decreased appetite [Unknown]
  - Malabsorption [Unknown]
  - Body height decreased [Unknown]
  - Weight decreased [Unknown]
  - Respiratory rate increased [Unknown]
  - Pyrexia [Unknown]
  - Impaired healing [Unknown]
  - Hypertension [Unknown]
  - Soft tissue inflammation [Unknown]
  - Muscle spasms [Unknown]
  - Pain in extremity [Unknown]
  - Musculoskeletal chest pain [Unknown]
  - Myalgia [Unknown]
  - Insomnia [Unknown]
  - Lymphadenopathy [Unknown]
  - Lung disorder [Unknown]
  - Haemorrhage [Unknown]
  - Menstruation irregular [Unknown]
  - Alopecia [Unknown]
  - Fatigue [Unknown]
